FAERS Safety Report 18284302 (Version 1)
Quarter: 2020Q3

REPORT INFORMATION
  Report Type: Spontaneous
  Country: US (occurrence: US)
  Receive Date: 20200918
  Receipt Date: 20200918
  Transmission Date: 20201103
  Serious: Yes (Death, Hospitalization)
  Sender: FDA-Public Use
  Company Number: US-PUMA BIOTECHNOLOGY, LTD.-2020US005363

PATIENT

DRUGS (1)
  1. NERLYNX [Suspect]
     Active Substance: NERATINIB
     Indication: PRODUCT USED FOR UNKNOWN INDICATION
     Dosage: UNK, UNK
     Route: 065

REACTIONS (2)
  - Death [Fatal]
  - Hospitalisation [Unknown]

NARRATIVE: CASE EVENT DATE: 202008
